FAERS Safety Report 9891142 (Version 1)
Quarter: 2014Q1

REPORT INFORMATION
  Report Type: Spontaneous
  Country: US (occurrence: None)
  Receive Date: 20140211
  Receipt Date: 20140211
  Transmission Date: 20141002
  Serious: Yes (Other)
  Sender: FDA-Public Use
  Company Number: None

PATIENT
  Age: 19 Year
  Sex: Female
  Weight: 45.36 kg

DRUGS (1)
  1. MEFLOQUINE 250MG [Suspect]
     Indication: MALARIA
     Route: 048
     Dates: start: 20140101, end: 20140131

REACTIONS (4)
  - Anxiety [None]
  - Depression [None]
  - Sleep disorder [None]
  - Fear [None]
